FAERS Safety Report 21471288 (Version 1)
Quarter: 2022Q4

REPORT INFORMATION
  Report Type: Spontaneous
  Country: FR (occurrence: None)
  Receive Date: 20221018
  Receipt Date: 20221018
  Transmission Date: 20230112
  Serious: Yes (Other)
  Sender: FDA-Public Use
  Company Number: 2022A347377

PATIENT
  Age: 75 Year
  Sex: Female

DRUGS (1)
  1. TAGRISSO [Suspect]
     Active Substance: OSIMERTINIB
     Indication: Non-small cell lung cancer metastatic
     Route: 048

REACTIONS (1)
  - Pericardial effusion [Unknown]
